FAERS Safety Report 8211060-4 (Version None)
Quarter: 2012Q1

REPORT INFORMATION
  Report Type: 
  Country: None (occurrence: None)
  Receive Date: 20120315
  Receipt Date: 20120310
  Transmission Date: 20120608
  Serious: Yes (Other)
  Sender: FDA-Public Use
  Company Number: PHHY2011MX21902

PATIENT
  Sex: Female

DRUGS (7)
  1. LEVOTHYROXINE SODIUM [Concomitant]
     Dosage: UNK UKN, QD
     Dates: start: 20120201
  2. ARCOXIA [Concomitant]
     Dosage: 1 DF, UNK
     Dates: start: 20111001
  3. ZOLEDRONOC ACID [Suspect]
     Indication: OSTEOPOROSIS
     Dosage: 5 MG/100 ML, UNK (PER YEAR)
     Route: 042
     Dates: start: 20110309
  4. DOLOCARTIGEN [Concomitant]
     Dosage: 1 DF, UNK
     Dates: start: 20110401
  5. FABROBEL [Concomitant]
     Dosage: 2 DF, DAILY
  6. VYTORIN [Concomitant]
     Dosage: UNK UKN, QD
     Dates: start: 20111201
  7. CELEBREX [Suspect]
     Dosage: UNK UKN, QD
     Dates: start: 20120201

REACTIONS (5)
  - ARTHRALGIA [None]
  - PAIN [None]
  - DYSPNOEA [None]
  - CHEST PAIN [None]
  - MUSCULOSKELETAL PAIN [None]
